FAERS Safety Report 4788604-8 (Version None)
Quarter: 2005Q4

REPORT INFORMATION
  Report Type: 
  Country: None (occurrence: None)
  Receive Date: 20051005
  Receipt Date: 20050926
  Transmission Date: 20060501
  Serious: Yes (Other)
  Sender: FDA-Public Use
  Company Number: 200516943US

PATIENT
  Sex: Female
  Weight: 51.8 kg

DRUGS (3)
  1. NASACORT AQ [Suspect]
     Indication: MULTIPLE ALLERGIES
     Dosage: DOSE: 2 SPRAYS EACH NOSTRIL
     Route: 061
     Dates: start: 20050901, end: 20050905
  2. VITAMINS NOS [Concomitant]
     Indication: LACRIMATION INCREASED
     Dosage: DOSE: UNKNOWN
  3. OSCAL [Concomitant]
     Dosage: DOSE: UNKNOWN

REACTIONS (8)
  - BLOOD PRESSURE DECREASED [None]
  - BLOOD PRESSURE INCREASED [None]
  - BLOOD PRESSURE SYSTOLIC INCREASED [None]
  - DIARRHOEA [None]
  - DIZZINESS [None]
  - EXCITABILITY [None]
  - FALL [None]
  - LOSS OF CONSCIOUSNESS [None]
